FAERS Safety Report 9819270 (Version 1)
Quarter: 2013Q4

REPORT INFORMATION
  Report Type: Spontaneous
  Country: US (occurrence: None)
  Receive Date: 20131223
  Receipt Date: 20131223
  Transmission Date: 20140711
  Serious: No
  Sender: FDA-Public Use
  Company Number: 221126

PATIENT
  Age: 48 Year
  Sex: Female

DRUGS (6)
  1. PICATO (0.015 %) [Suspect]
     Indication: ACTINIC KERATOSIS
     Dosage: (FOR A DAYS), ON FACE
     Dates: start: 20130329, end: 20130331
  2. ZYMBULTA (DULOXETINE HYDROCHLORIDE) [Concomitant]
  3. WELLBUTRIN (BUPROPION)?? [Concomitant]
  4. MVI (MVI) [Concomitant]
  5. FISH OIL (FISH OIL) [Concomitant]
  6. UROCIT K (POTASSIUM CITRATE) [Concomitant]

REACTIONS (4)
  - Application site erythema [None]
  - Application site nodule [None]
  - Drug administered at inappropriate site [None]
  - Inappropriate schedule of drug administration [None]
